FAERS Safety Report 8218454-1 (Version None)
Quarter: 2012Q1

REPORT INFORMATION
  Report Type: 
  Country: None (occurrence: None)
  Receive Date: 20120319
  Receipt Date: 20120315
  Transmission Date: 20120608
  Serious: No
  Sender: FDA-Public Use
  Company Number: US-PFIZER INC-2012069046

PATIENT
  Sex: Female
  Weight: 58.957 kg

DRUGS (3)
  1. LORTAB [Interacting]
     Indication: PAIN
     Dosage: 1 DF, 1X/DAY (5/500 MG TABLET)
     Route: 048
     Dates: start: 20120302
  2. CELEBREX [Suspect]
     Indication: RHEUMATOID ARTHRITIS
     Dosage: 200 MG, 1X/DAY
     Route: 048
     Dates: start: 20120302
  3. NORGESTIMATE AND ETHINYL ESTRADIOL [Concomitant]
     Indication: CONTRACEPTION
     Dosage: UNK

REACTIONS (2)
  - DRUG INTERACTION [None]
  - PAIN [None]
